FAERS Safety Report 19828111 (Version 2)
Quarter: 2021Q3

REPORT INFORMATION
  Report Type: Report from Study
  Country: CA (occurrence: CA)
  Receive Date: 20210914
  Receipt Date: 20210916
  Transmission Date: 20211014
  Serious: Yes (Hospitalization)
  Sender: FDA-Public Use
  Company Number: CA-EISAI MEDICAL RESEARCH-EC-2021-099384

PATIENT
  Age: 47 Year
  Sex: Male
  Weight: 72 kg

DRUGS (9)
  1. LENVATINIB [Suspect]
     Active Substance: LENVATINIB
     Indication: COLORECTAL CANCER
     Route: 048
     Dates: start: 20210617, end: 20210908
  2. SENOKOT [Concomitant]
     Active Substance: SENNOSIDES
     Dates: start: 20210527
  3. M?ESLON [Concomitant]
     Active Substance: MORPHINE SULFATE
     Dates: start: 20210604
  4. JANUVIA [Concomitant]
     Active Substance: SITAGLIPTIN PHOSPHATE
     Dates: start: 20210408
  5. STATEX [Concomitant]
     Dates: start: 20210527
  6. LAX A DAY PHARMA [Concomitant]
     Dates: start: 20210527
  7. METFORMIN [Concomitant]
     Active Substance: METFORMIN HYDROCHLORIDE
     Dates: start: 20210408
  8. TYLENOL [Concomitant]
     Active Substance: ACETAMINOPHEN
     Dates: start: 20210527
  9. SYNTHROID [Concomitant]
     Active Substance: LEVOTHYROXINE SODIUM
     Dates: start: 20210721

REACTIONS (1)
  - Blood bilirubin increased [Not Recovered/Not Resolved]

NARRATIVE: CASE EVENT DATE: 20210906
